FAERS Safety Report 17989256 (Version 1)
Quarter: 2020Q3

REPORT INFORMATION
  Report Type: Spontaneous
  Country: GB (occurrence: GB)
  Receive Date: 20200707
  Receipt Date: 20200707
  Transmission Date: 20201103
  Serious: Yes (Other)
  Sender: FDA-Public Use
  Company Number: GB-TEVA-2020-GB-1796136

PATIENT
  Age: 29 Year
  Sex: Female
  Weight: 51 kg

DRUGS (1)
  1. CIPROFLOXACIN. [Suspect]
     Active Substance: CIPROFLOXACIN
     Indication: GASTROENTERITIS
     Dosage: 7 GRAM
     Route: 048
     Dates: start: 20200516, end: 20200522

REACTIONS (14)
  - Scar [Unknown]
  - Rash [Unknown]
  - Arthralgia [Not Recovered/Not Resolved]
  - Joint noise [Unknown]
  - Skin exfoliation [Unknown]
  - Skin discolouration [Unknown]
  - Joint swelling [Not Recovered/Not Resolved]
  - Anxiety [Recovered/Resolved]
  - Tendonitis [Not Recovered/Not Resolved]
  - Muscle twitching [Not Recovered/Not Resolved]
  - Scab [Unknown]
  - Muscle contractions involuntary [Unknown]
  - Pyrexia [Recovered/Resolved]
  - Skin irritation [Recovered/Resolved]

NARRATIVE: CASE EVENT DATE: 20200522
